FAERS Safety Report 16853960 (Version 3)
Quarter: 2019Q4

REPORT INFORMATION
  Report Type: Not Available
  Country: US (occurrence: US)
  Receive Date: 20190926
  Receipt Date: 20191209
  Transmission Date: 20200122
  Serious: No
  Sender: FDA-Public Use
  Company Number: US-NEUROCRINE BIOSCIENCES INC.-2019NBI02700

PATIENT
  Age: 69 Year
  Sex: Male

DRUGS (2)
  1. INGREZZA [Suspect]
     Active Substance: VALBENAZINE
     Route: 048
     Dates: start: 20190827
  2. INGREZZA [Suspect]
     Active Substance: VALBENAZINE
     Indication: TARDIVE DYSKINESIA
     Route: 048
     Dates: start: 20190819, end: 20190826

REACTIONS (5)
  - Pain in extremity [Recovered/Resolved]
  - Hypokinesia [Unknown]
  - Somnolence [Unknown]
  - Therapeutic product effect decreased [None]
  - Fatigue [Recovered/Resolved]

NARRATIVE: CASE EVENT DATE: 2019
